FAERS Safety Report 22888681 (Version 3)
Quarter: 2024Q1

REPORT INFORMATION
  Report Type: Spontaneous
  Country: US (occurrence: US)
  Receive Date: 20230831
  Receipt Date: 20240206
  Transmission Date: 20240410
  Serious: Yes (Hospitalization)
  Sender: FDA-Public Use
  Company Number: US-BRISTOL-MYERS SQUIBB COMPANY-2023-123023

PATIENT
  Age: 73 Year
  Sex: Female
  Weight: 83.91 kg

DRUGS (2)
  1. REVLIMID [Suspect]
     Active Substance: LENALIDOMIDE
     Indication: Plasma cell myeloma
     Dates: start: 20230901, end: 20230921
  2. REVLIMID [Suspect]
     Active Substance: LENALIDOMIDE
     Dosage: QD21DON7DOFF
     Route: 048
     Dates: end: 20231231

REACTIONS (3)
  - Tooth disorder [Unknown]
  - Respiratory syncytial virus infection [Unknown]
  - Tooth fracture [Unknown]

NARRATIVE: CASE EVENT DATE: 20230701
